FAERS Safety Report 8595907 (Version 2)
Quarter: 2012Q4

REPORT INFORMATION
  Report Type: 
  Country: US (occurrence: US)
  Receive Date: 20120605
  Receipt Date: 20121005
  Transmission Date: 20130627
  Serious: No
  Sender: FDA-Public Use
  Company Number: US-ASTRAZENECA-2012SE35901

PATIENT
  Age: 56 Year
  Sex: Male

DRUGS (7)
  1. NEXIUM [Suspect]
     Indication: GASTROOESOPHAGEAL REFLUX DISEASE
     Route: 048
  2. NEXIUM [Suspect]
     Indication: GASTROOESOPHAGEAL REFLUX DISEASE
     Route: 048
     Dates: start: 2009
  3. NEXIUM [Suspect]
     Indication: GASTROOESOPHAGEAL REFLUX DISEASE
     Route: 048
     Dates: start: 20100525
  4. TRAMADOL HCL [Concomitant]
     Dates: start: 200912
  5. HYDROCO/APAP [Concomitant]
     Dosage: 5 TO 500 MG
     Dates: start: 201001
  6. CYCLOBENZAPR [Concomitant]
     Dates: start: 201001
  7. IBUPROFEN [Concomitant]
     Dates: start: 20100224

REACTIONS (4)
  - Osteoporosis [Unknown]
  - Multiple fractures [Unknown]
  - Bone loss [Unknown]
  - Bone pain [Unknown]
